FAERS Safety Report 24920941 (Version 1)
Quarter: 2025Q1

REPORT INFORMATION
  Report Type: Report from Study
  Country: US (occurrence: US)
  Receive Date: 20250204
  Receipt Date: 20250204
  Transmission Date: 20250409
  Serious: Yes (Other)
  Sender: ABBVIE
  Company Number: US-ABBVIE-6110449

PATIENT
  Age: 70 Year
  Sex: Male

DRUGS (1)
  1. RINVOQ [Suspect]
     Active Substance: UPADACITINIB
     Indication: Crohn^s disease
     Route: 048
     Dates: start: 20240111

REACTIONS (10)
  - Deafness unilateral [Not Recovered/Not Resolved]
  - Road traffic accident [Unknown]
  - Inflammation [Unknown]
  - Arthritis [Unknown]
  - Drug ineffective [Not Recovered/Not Resolved]
  - Sinusitis [Not Recovered/Not Resolved]
  - Vertigo [Unknown]
  - Loss of consciousness [Unknown]
  - Deafness bilateral [Unknown]
  - Arthralgia [Unknown]

NARRATIVE: CASE EVENT DATE: 20241225
